FAERS Safety Report 6331526-1 (Version None)
Quarter: 2009Q3

REPORT INFORMATION
  Report Type: 
  Country: None (occurrence: None)
  Receive Date: 20090827
  Receipt Date: 20090821
  Transmission Date: 20100115
  Serious: Yes (Hospitalization, Other)
  Sender: FDA-Public Use
  Company Number: GB-AMGEN-UK358004

PATIENT
  Sex: Female

DRUGS (15)
  1. MIMPARA [Suspect]
     Indication: RENAL FAILURE CHRONIC
     Route: 048
     Dates: start: 20090602, end: 20090703
  2. TACROLIMUS [Suspect]
     Route: 048
     Dates: start: 20061001
  3. ARANESP [Concomitant]
     Route: 058
     Dates: start: 20090417
  4. SODIUM BICARBONATE IN PLASTIC CONTAINER [Concomitant]
     Route: 048
     Dates: start: 20090603, end: 20090704
  5. PARACETAMOL [Concomitant]
     Route: 048
  6. ALFACALCIDOL [Concomitant]
     Route: 048
     Dates: start: 20090402, end: 20090703
  7. ALLOPURINOL [Concomitant]
     Route: 048
     Dates: start: 20070517
  8. PREDNISOLONE [Concomitant]
     Route: 048
     Dates: start: 20061001
  9. OMEPRAZOLE [Concomitant]
     Route: 048
     Dates: start: 20070105, end: 20090703
  10. FUROSEMIDE [Concomitant]
     Route: 065
     Dates: start: 20080910
  11. RANITIDINE [Concomitant]
     Route: 065
  12. FRAGMIN [Concomitant]
     Route: 065
  13. CLOPIDOGREL [Concomitant]
     Route: 048
     Dates: start: 20090512
  14. PERINDOPRIL [Concomitant]
     Route: 048
     Dates: start: 20090512, end: 20090630
  15. FERROUS SULFATE TAB [Concomitant]
     Route: 048
     Dates: start: 20090512, end: 20090630

REACTIONS (13)
  - ABDOMINAL HERNIA [None]
  - ASTHENIA [None]
  - BLOOD CREATININE INCREASED [None]
  - BLOOD UREA INCREASED [None]
  - DRUG LEVEL INCREASED [None]
  - HAEMORRHAGE [None]
  - HEPATIC CYST [None]
  - JAUNDICE CHOLESTATIC [None]
  - LIVER FUNCTION TEST ABNORMAL [None]
  - PERITONEAL DISORDER [None]
  - PLEURAL EFFUSION [None]
  - TREMOR [None]
  - WHITE BLOOD CELL COUNT INCREASED [None]
